FAERS Safety Report 10456526 (Version 3)
Quarter: 2014Q4

REPORT INFORMATION
  Report Type: Spontaneous
  Country: US (occurrence: US)
  Receive Date: 20140916
  Receipt Date: 20141020
  Transmission Date: 20150528
  Serious: Yes (Other)
  Sender: FDA-Public Use
  Company Number: US-SA-2014SA125151

PATIENT
  Age: 58 Year
  Sex: Male

DRUGS (9)
  1. LANTUS SOLOSTAR [Suspect]
     Active Substance: INSULIN GLARGINE
     Indication: DIABETES MELLITUS
     Dosage: 32-34UNITS
     Route: 065
     Dates: start: 201408
  2. OXYCODONE [Concomitant]
     Active Substance: OXYCODONE
  3. OTHER LIPID MODIFYING AGENTS [Concomitant]
     Active Substance: UNSPECIFIED INGREDIENT
  4. XANAX [Concomitant]
     Active Substance: ALPRAZOLAM
  5. LANTUS SOLOSTAR [Suspect]
     Active Substance: INSULIN GLARGINE
     Indication: DIABETES MELLITUS
     Dosage: 32-34UNITS
     Route: 065
     Dates: start: 201406, end: 20140727
  6. SOLOSTAR [Concomitant]
     Active Substance: DEVICE
  7. NAPROXEN. [Concomitant]
     Active Substance: NAPROXEN
  8. BACLOFEN. [Concomitant]
     Active Substance: BACLOFEN
  9. LANTUS SOLOSTAR [Suspect]
     Active Substance: INSULIN GLARGINE
     Indication: DIABETES MELLITUS
     Dosage: DOSE:15 UNIT(S)
     Route: 065

REACTIONS (17)
  - Kidney infection [Not Recovered/Not Resolved]
  - Dyslexia [Unknown]
  - Insomnia [Unknown]
  - Dehydration [Recovered/Resolved]
  - Hypophagia [Unknown]
  - Micturition urgency [Not Recovered/Not Resolved]
  - Tremor [Unknown]
  - Dehydration [Recovered/Resolved]
  - Pigmentation disorder [Unknown]
  - Condition aggravated [Unknown]
  - Hypersensitivity [Unknown]
  - Somnolence [Recovered/Resolved]
  - Hyperhidrosis [Recovered/Resolved]
  - Blood glucose abnormal [Recovered/Resolved]
  - Shock [Recovered/Resolved]
  - Back pain [Not Recovered/Not Resolved]
  - Memory impairment [Recovered/Resolved]

NARRATIVE: CASE EVENT DATE: 20140728
